FAERS Safety Report 11512443 (Version 2)
Quarter: 2017Q1

REPORT INFORMATION
  Report Type: Report from Study
  Country: FR (occurrence: FR)
  Receive Date: 20150916
  Receipt Date: 20170306
  Transmission Date: 20170428
  Serious: No
  Sender: FDA-Public Use
  Company Number: PHHY2015FR092072

PATIENT
  Age: 57 Year
  Sex: Female

DRUGS (4)
  1. EXEMESTANE. [Suspect]
     Active Substance: EXEMESTANE
     Indication: BREAST CANCER METASTATIC
     Dosage: 25 MG, QD
     Route: 048
     Dates: start: 20150528, end: 20160424
  2. AFINITOR [Suspect]
     Active Substance: EVEROLIMUS
     Indication: BREAST CANCER METASTATIC
     Dosage: 10 MG, QD
     Route: 048
     Dates: start: 201505, end: 20150618
  3. AFINITOR [Suspect]
     Active Substance: EVEROLIMUS
     Dosage: 2.5 MG, QD
     Route: 048
     Dates: start: 20151015, end: 20151021
  4. AFINITOR [Suspect]
     Active Substance: EVEROLIMUS
     Dosage: 5 MG, QD
     Route: 048
     Dates: start: 201506, end: 201506

REACTIONS (4)
  - Hordeolum [Recovered/Resolved]
  - Haemorrhoids [Recovered/Resolved]
  - Mucosal inflammation [Recovering/Resolving]
  - Stomatitis [Recovered/Resolved]

NARRATIVE: CASE EVENT DATE: 201505
